FAERS Safety Report 16568026 (Version 3)
Quarter: 2023Q1

REPORT INFORMATION
  Report Type: Spontaneous
  Country: AT (occurrence: AT)
  Receive Date: 20190712
  Receipt Date: 20230327
  Transmission Date: 20230418
  Serious: Yes (Life-Threatening, Other)
  Sender: FDA-Public Use
  Company Number: PHHY2019AT160684

PATIENT
  Age: 60 Year
  Sex: Female

DRUGS (7)
  1. DOXORUBICIN HYDROCHLORIDE [Suspect]
     Active Substance: DOXORUBICIN HYDROCHLORIDE
     Indication: Ovarian cancer
     Dosage: 1 CYCLIC
     Route: 065
     Dates: start: 2016
  2. DOXORUBICIN HYDROCHLORIDE [Suspect]
     Active Substance: DOXORUBICIN HYDROCHLORIDE
     Dosage: 20% DOSE REDUCTION
     Route: 065
     Dates: start: 2016
  3. CARBOPLATIN [Suspect]
     Active Substance: CARBOPLATIN
     Indication: Ovarian cancer
     Dosage: CYCLIC (5 CYCLES)
     Route: 065
     Dates: start: 2012
  4. CARBOPLATIN [Suspect]
     Active Substance: CARBOPLATIN
     Dosage: ALSO RECEIVED IN JAN-2015
     Route: 065
     Dates: start: 2012
  5. PACLITAXEL [Suspect]
     Active Substance: PACLITAXEL
     Indication: Ovarian cancer
     Dosage: CYCLIC (5 CYCLES)
     Route: 065
     Dates: start: 2012
  6. BEVACIZUMAB [Concomitant]
     Active Substance: BEVACIZUMAB
     Indication: Ovarian cancer
     Dosage: UNK
     Route: 065
     Dates: start: 201501, end: 201512
  7. LENOGRASTIM [Concomitant]
     Active Substance: LENOGRASTIM
     Indication: Prophylaxis
     Dosage: UNK
     Route: 065

REACTIONS (3)
  - Clostridium colitis [Unknown]
  - Thrombocytopenia [Unknown]
  - Neutropenia [Unknown]

NARRATIVE: CASE EVENT DATE: 20160101
